FAERS Safety Report 26195999 (Version 1)
Quarter: 2025Q4

REPORT INFORMATION
  Report Type: Spontaneous
  Country: EU (occurrence: EU)
  Receive Date: 20251224
  Receipt Date: 20251224
  Transmission Date: 20260118
  Serious: Yes (Hospitalization, Other)
  Sender: VIIV
  Company Number: EU-VIIV HEALTHCARE ULC-LV2025EME163919

PATIENT
  Age: 51 Year
  Sex: Female

DRUGS (3)
  1. ABACAVIR SULFATE\LAMIVUDINE [Suspect]
     Active Substance: ABACAVIR SULFATE\LAMIVUDINE
     Indication: HIV infection
     Dosage: UNK UNK, QD
  2. RALTEGRAVIR [Suspect]
     Active Substance: RALTEGRAVIR
     Indication: HIV infection
     Dosage: 400 MG, BID
  3. EPCLUSA [Concomitant]
     Active Substance: SOFOSBUVIR\VELPATASVIR
     Indication: Hepatitis C RNA positive
     Dosage: UNK  400/100 MG FOR 12 WEEKS

REACTIONS (14)
  - Coronary artery disease [Unknown]
  - Bone tuberculosis [Unknown]
  - Pulmonary tuberculosis [Unknown]
  - Bone abscess [Unknown]
  - Spinal cord infection [Unknown]
  - Paraparesis [Unknown]
  - Extradural abscess [Unknown]
  - Spinal cord compression [Unknown]
  - Dilated cardiomyopathy [Unknown]
  - Tricuspid valve incompetence [Unknown]
  - Mitral valve incompetence [Unknown]
  - Cardiac failure chronic [Unknown]
  - Dyslipidaemia [Unknown]
  - Spinal stenosis [Unknown]

NARRATIVE: CASE EVENT DATE: 20201001
